FAERS Safety Report 8761160 (Version 2)
Quarter: 2012Q4

REPORT INFORMATION
  Report Type: 
  Country: FI (occurrence: FI)
  Receive Date: 20120830
  Receipt Date: 20121003
  Transmission Date: 20130627
  Serious: Yes (Hospitalization)
  Sender: FDA-Public Use
  Company Number: FI-ALLERGAN-1211722US

PATIENT
  Age: 46 Year
  Sex: Female

DRUGS (10)
  1. BOTOX [Suspect]
     Indication: SPASTICITY
     Dosage: 280 UNITS, single
  2. BOTOX [Suspect]
     Indication: PAIN
     Dosage: 200 UNITS, single
  3. BOTOX [Suspect]
     Dosage: 140 UNITS, single
  4. LYRICA [Concomitant]
     Dosage: 15 mg, bid
  5. NEUROTOL SLOW [Concomitant]
     Dosage: 100 mg, bid
  6. SIRDALUD [Concomitant]
     Dosage: 6 mg, bid
  7. KESTINE [Concomitant]
     Dosage: 10 mg, qd
  8. VENLAFAXINA [Concomitant]
     Dosage: 75 mg, qd
  9. HIPEKSAL [Concomitant]
  10. BECORION [Concomitant]

REACTIONS (1)
  - Myasthenia gravis [Recovering/Resolving]
